FAERS Safety Report 11142584 (Version 1)
Quarter: 2015Q2

REPORT INFORMATION
  Report Type: Spontaneous
  Country: FR (occurrence: FR)
  Receive Date: 20150527
  Receipt Date: 20150527
  Transmission Date: 20150821
  Serious: Yes (Life-Threatening, Other)
  Sender: FDA-Public Use
  Company Number: PHHY2015FR060974

PATIENT
  Age: 15 Year
  Sex: Female

DRUGS (1)
  1. AMOXICILLIN+CLAVULANATE SANDOZ [Suspect]
     Active Substance: AMOXICILLIN\CLAVULANATE POTASSIUM
     Indication: SURGERY
     Dosage: 2 G, ONCE/SINGLE
     Route: 042
     Dates: start: 20150504, end: 20150504

REACTIONS (6)
  - Blood pressure decreased [Recovered/Resolved]
  - Bronchospasm [Recovered/Resolved]
  - Anaphylactic shock [Recovered/Resolved]
  - Erythema [Recovered/Resolved]
  - Circulatory collapse [Recovered/Resolved]
  - Rash [Recovered/Resolved]

NARRATIVE: CASE EVENT DATE: 20150504
